FAERS Safety Report 6202061-6 (Version None)
Quarter: 2009Q2

REPORT INFORMATION
  Report Type: 
  Country: None (occurrence: None)
  Receive Date: 20090526
  Receipt Date: 20090518
  Transmission Date: 20091009
  Serious: Yes (Other)
  Sender: FDA-Public Use
  Company Number: B0575252A

PATIENT
  Sex: Male

DRUGS (10)
  1. PAXIL [Suspect]
     Indication: DEPRESSION
     Dosage: 10MG PER DAY
     Route: 048
     Dates: start: 20080412, end: 20090316
  2. MEILAX [Concomitant]
     Indication: AUTONOMIC NERVOUS SYSTEM IMBALANCE
     Dosage: 1MG PER DAY
     Route: 048
     Dates: start: 20080412, end: 20080418
  3. MEILAX [Concomitant]
     Dosage: 2MG PER DAY
     Route: 048
     Dates: start: 20080419, end: 20090220
  4. MEILAX [Concomitant]
     Dosage: 1MG PER DAY
     Route: 048
     Dates: start: 20090221
  5. CYANOCOBALAMIN [Concomitant]
     Route: 065
     Dates: start: 20080419
  6. ADETPHOS [Concomitant]
     Route: 048
     Dates: start: 20080419
  7. EURAX [Concomitant]
     Route: 061
     Dates: start: 20080419
  8. TEGRETOL [Concomitant]
     Route: 048
     Dates: start: 20090221, end: 20090227
  9. TEGRETOL [Concomitant]
     Route: 048
     Dates: start: 20090228, end: 20090302
  10. LIMAS [Concomitant]
     Route: 048
     Dates: start: 20090303

REACTIONS (8)
  - ABNORMAL BEHAVIOUR [None]
  - ABULIA [None]
  - AGGRESSION [None]
  - ANGER [None]
  - DEPRESSED MOOD [None]
  - IRRITABILITY [None]
  - MOOD SWINGS [None]
  - STRESS [None]
